FAERS Safety Report 12935946 (Version 1)
Quarter: 2016Q4

REPORT INFORMATION
  Report Type: Spontaneous
  Country: US (occurrence: US)
  Receive Date: 20161114
  Receipt Date: 20161114
  Transmission Date: 20170207
  Serious: Yes (Hospitalization)
  Sender: FDA-Public Use
  Company Number: US-HORIZON-PRE-0324-2016

PATIENT
  Age: 46 Year
  Sex: Male

DRUGS (1)
  1. PREDNISONE. [Suspect]
     Active Substance: PREDNISONE
     Indication: GOUT
     Dosage: TWENTY-YEAR HISTORY OF 5 DAY COURSES

REACTIONS (1)
  - Epidural lipomatosis [Recovering/Resolving]
